FAERS Safety Report 4318721-8 (Version None)
Quarter: 2004Q1

REPORT INFORMATION
  Report Type: 
  Country: None (occurrence: None)
  Receive Date: 20040315
  Receipt Date: 20040301
  Transmission Date: 20041129
  Serious: Yes (Other)
  Sender: FDA-Public Use
  Company Number: 2004014335

PATIENT
  Sex: Female
  Weight: 68.9467 kg

DRUGS (11)
  1. LIPITOR [Suspect]
     Indication: HYPERLIPIDAEMIA
     Dosage: 40 MG(DAILY), ORAL
     Route: 048
     Dates: start: 19981101, end: 20040301
  2. GLIMEPIRIDE [Suspect]
     Indication: DIABETES MELLITUS NON-INSULIN-DEPENDENT
     Dosage: 0.5 MG (DAILY), ORAL
     Route: 048
     Dates: end: 20040301
  3. VERAPAMIL [Concomitant]
  4. TOCOPHEROL CONCENTRATE CAP [Concomitant]
  5. TRIAMCINOLONE ACETONIDE [Concomitant]
  6. MULTIVITAMINS, PLAIN [Concomitant]
  7. NIFEDIPINE [Concomitant]
  8. OMEPRAZOLE [Concomitant]
  9. LOSARTAN POTASSIUM (LOSARTAN POTASSIUM) [Concomitant]
  10. FLUTICASONE PROPIONATE [Concomitant]
  11. FAMOTIDINE [Concomitant]

REACTIONS (7)
  - ALANINE AMINOTRANSFERASE INCREASED [None]
  - ASPARTATE AMINOTRANSFERASE INCREASED [None]
  - BLOOD CREATINE PHOSPHOKINASE INCREASED [None]
  - BLOOD PRESSURE DIASTOLIC DECREASED [None]
  - DIABETES MELLITUS INADEQUATE CONTROL [None]
  - MYALGIA [None]
  - MYOGLOBIN BLOOD INCREASED [None]
